FAERS Safety Report 21494648 (Version 1)
Quarter: 2022Q4

REPORT INFORMATION
  Report Type: Report from Study
  Country: CO (occurrence: CO)
  Receive Date: 20221021
  Receipt Date: 20221021
  Transmission Date: 20230112
  Serious: Yes (Death)
  Sender: FDA-Public Use
  Company Number: CO-TAKEDA-2022TUS076880

PATIENT
  Sex: Female
  Weight: 88 kg

DRUGS (1)
  1. BRENTUXIMAB VEDOTIN [Suspect]
     Active Substance: BRENTUXIMAB VEDOTIN
     Indication: Hodgkin^s disease
     Dosage: 145 MILLIGRAM, Q3WEEKS
     Route: 042
     Dates: start: 20221005

REACTIONS (1)
  - Adverse event [Fatal]
